FAERS Safety Report 9689608 (Version 1)
Quarter: 2013Q4

REPORT INFORMATION
  Report Type: Spontaneous
  Country: DE (occurrence: DE)
  Receive Date: 20131115
  Receipt Date: 20131115
  Transmission Date: 20140711
  Serious: Yes (Hospitalization)
  Sender: FDA-Public Use
  Company Number: DE-BIOGENIDEC-2013BI108633

PATIENT
  Age: 20 Year
  Sex: Female
  Weight: 46 kg

DRUGS (2)
  1. AVONEX [Suspect]
     Indication: MULTIPLE SCLEROSIS
     Route: 030
     Dates: start: 20120901
  2. IBUPROFEN [Concomitant]
     Indication: PROPHYLAXIS
     Route: 048
     Dates: start: 201209, end: 201308

REACTIONS (3)
  - Erythema infectiosum [Recovered/Resolved]
  - Blood test abnormal [Unknown]
  - Drug hypersensitivity [Recovered/Resolved]
